FAERS Safety Report 14013739 (Version 1)
Quarter: 2017Q3

REPORT INFORMATION
  Report Type: Report from Study
  Country: US (occurrence: US)
  Receive Date: 20170926
  Receipt Date: 20170926
  Transmission Date: 20171128
  Serious: Yes (Hospitalization, Other)
  Sender: FDA-Public Use
  Company Number: US-ACTELION-A-US2017-151179

PATIENT
  Age: 57 Year
  Sex: Female
  Weight: 74.83 kg

DRUGS (2)
  1. SILDENAFIL. [Concomitant]
     Active Substance: SILDENAFIL
  2. VELETRI [Suspect]
     Active Substance: EPOPROSTENOL
     Indication: PULMONARY HYPERTENSION
     Dosage: 6 NG/KG, PER MIN
     Route: 042
     Dates: start: 2017

REACTIONS (17)
  - Headache [Not Recovered/Not Resolved]
  - Contusion [Unknown]
  - Pain in jaw [Not Recovered/Not Resolved]
  - Platelet count decreased [Unknown]
  - Hepatic neoplasm [Not Recovered/Not Resolved]
  - Weight decreased [Unknown]
  - Fall [Unknown]
  - Somnolence [Unknown]
  - Back pain [Recovering/Resolving]
  - Oral discomfort [Unknown]
  - Flatulence [Not Recovered/Not Resolved]
  - Diarrhoea [Not Recovered/Not Resolved]
  - Pulmonary arterial pressure abnormal [Unknown]
  - Device related thrombosis [Unknown]
  - Liver transplant [Not Recovered/Not Resolved]
  - Insomnia [Unknown]
  - Bone pain [Not Recovered/Not Resolved]

NARRATIVE: CASE EVENT DATE: 201703
